FAERS Safety Report 10004174 (Version 1)
Quarter: 2014Q1

REPORT INFORMATION
  Report Type: Spontaneous
  Country: US (occurrence: US)
  Receive Date: 20140312
  Receipt Date: 20140312
  Transmission Date: 20141002
  Serious: No
  Sender: FDA-Public Use
  Company Number: US-TEVA-468251USA

PATIENT
  Age: 34 Year
  Sex: Female
  Weight: 66.74 kg

DRUGS (4)
  1. PARAGARD 380A [Suspect]
     Indication: CONTRACEPTION
     Route: 015
     Dates: start: 20000329, end: 20080213
  2. MULTIVITAMIN [Concomitant]
     Indication: NUTRITIONAL SUPPLEMENTATION
  3. VITAMIN D [Concomitant]
     Indication: NUTRITIONAL SUPPLEMENTATION
  4. FISH OIL [Concomitant]
     Indication: NUTRITIONAL SUPPLEMENTATION

REACTIONS (2)
  - Menorrhagia [Unknown]
  - Medical device complication [Unknown]
